FAERS Safety Report 6838577-9 (Version None)
Quarter: 2010Q3

REPORT INFORMATION
  Report Type: 
  Country: None (occurrence: None)
  Receive Date: 20100713
  Receipt Date: 20070613
  Transmission Date: 20110219
  Serious: No
  Sender: FDA-Public Use
  Company Number: US-PFIZER INC-2007050216

PATIENT
  Sex: Female
  Weight: 70.3 kg

DRUGS (2)
  1. CHANTIX [Suspect]
     Dates: start: 20070602, end: 20070612
  2. VITAMINS [Concomitant]
     Dates: end: 20070101

REACTIONS (7)
  - ASTHENIA [None]
  - BACK PAIN [None]
  - CHEST PAIN [None]
  - DIZZINESS [None]
  - HEADACHE [None]
  - INFLUENZA LIKE ILLNESS [None]
  - MALAISE [None]
